FAERS Safety Report 17533267 (Version 3)
Quarter: 2021Q3

REPORT INFORMATION
  Report Type: Spontaneous
  Country: US (occurrence: US)
  Receive Date: 20200312
  Receipt Date: 20210913
  Transmission Date: 20211014
  Serious: Yes (Other)
  Sender: FDA-Public Use
  Company Number: US-BIOCODEX SA-202000167

PATIENT

DRUGS (7)
  1. DIACOMIT [Suspect]
     Active Substance: STIRIPENTOL
     Dosage: 750 MG THREE TIMES DAILY
  2. DIACOMIT [Suspect]
     Active Substance: STIRIPENTOL
     Dosage: 750 MG THREE TIMES DAILY
  3. DIACOMIT [Suspect]
     Active Substance: STIRIPENTOL
     Dosage: 1500 MG, QD
     Dates: start: 20190605
  4. DIACOMIT [Suspect]
     Active Substance: STIRIPENTOL
     Indication: SEVERE MYOCLONIC EPILEPSY OF INFANCY
     Dosage: 1500 MG, QD
     Dates: start: 20190605
  5. MELATONIN [Concomitant]
     Active Substance: MELATONIN
     Indication: PRODUCT USED FOR UNKNOWN INDICATION
     Dosage: UNK
     Route: 065
  6. ONFI [Concomitant]
     Active Substance: CLOBAZAM
     Indication: SEVERE MYOCLONIC EPILEPSY OF INFANCY
     Route: 065
  7. DEPAKOTE [Concomitant]
     Active Substance: DIVALPROEX SODIUM
     Indication: PRODUCT USED FOR UNKNOWN INDICATION
     Route: 065

REACTIONS (4)
  - Weight increased [Unknown]
  - Fall [Unknown]
  - SARS-CoV-2 test positive [Unknown]
  - Seizure [Unknown]

NARRATIVE: CASE EVENT DATE: 202006
